FAERS Safety Report 4314214-2 (Version None)
Quarter: 2004Q1

REPORT INFORMATION
  Report Type: 
  Country: None (occurrence: None)
  Receive Date: 20040304
  Receipt Date: 20030530
  Transmission Date: 20041129
  Serious: No
  Sender: FDA-Public Use
  Company Number: 201070

PATIENT
  Age: 13 Year
  Sex: Female
  Weight: 38.4 kg

DRUGS (1)
  1. NUTROPIN AQ [Suspect]
     Indication: GROWTH HORMONE DEFICIENCY
     Dosage: 1.8 MG, QD, SUBCUTANEOUS
     Route: 058
     Dates: start: 20020930, end: 20030418

REACTIONS (1)
  - BENIGN INTRACRANIAL HYPERTENSION [None]
